FAERS Safety Report 10385815 (Version 1)
Quarter: 2014Q3

REPORT INFORMATION
  Report Type: Spontaneous
  Country: PH (occurrence: PH)
  Receive Date: 20140814
  Receipt Date: 20140814
  Transmission Date: 20150326
  Serious: Yes (Other)
  Sender: FDA-Public Use
  Company Number: PH-009507513-1408PHL006471

PATIENT
  Sex: Male

DRUGS (1)
  1. JANUMET [Suspect]
     Active Substance: METFORMIN HYDROCHLORIDE\SITAGLIPTIN PHOSPHATE
     Indication: DIABETES MELLITUS
     Dosage: ONE TABLET, TWICE A DAY
     Route: 048
     Dates: start: 2013, end: 201408

REACTIONS (2)
  - Renal mass [Recovering/Resolving]
  - Blood creatine increased [Recovering/Resolving]

NARRATIVE: CASE EVENT DATE: 2013
